FAERS Safety Report 9773306 (Version 1)
Quarter: 2013Q4

REPORT INFORMATION
  Report Type: Spontaneous
  Country: US (occurrence: US)
  Receive Date: 20131219
  Receipt Date: 20131219
  Transmission Date: 20140711
  Serious: No
  Sender: FDA-Public Use
  Company Number: US-TEVA-448619USA

PATIENT
  Age: 45 Year
  Sex: Female
  Weight: 49.03 kg

DRUGS (2)
  1. PARAGARD 380A [Suspect]
     Indication: CONTRACEPTION
     Route: 015
     Dates: start: 2003
  2. HORMONES [Concomitant]

REACTIONS (2)
  - Muscle spasms [Unknown]
  - Menstrual disorder [Unknown]
